FAERS Safety Report 8310022-6 (Version None)
Quarter: 2012Q1

REPORT INFORMATION
  Report Type: 
  Country: None (occurrence: None)
  Receive Date: 20120315
  Receipt Date: 20110405
  Transmission Date: 20120608
  Serious: No
  Sender: FDA-Public Use
  Company Number: PHHY2011US18818

PATIENT
  Age: 40 Year
  Sex: Male

DRUGS (3)
  1. PROVIGIL [Concomitant]
  2. ARICEPT [Concomitant]
  3. GILENYA [Suspect]
     Indication: MULTIPLE SCLEROSIS
     Dosage: 0.5 MG, QD, ORAL
     Route: 048
     Dates: start: 20110303

REACTIONS (6)
  - MYALGIA [None]
  - HEART RATE DECREASED [None]
  - PERIPHERAL COLDNESS [None]
  - PALLOR [None]
  - INSOMNIA [None]
  - MUSCULOSKELETAL STIFFNESS [None]
